FAERS Safety Report 9437195 (Version 1)
Quarter: 2013Q3

REPORT INFORMATION
  Report Type: Spontaneous
  Country: US (occurrence: US)
  Receive Date: 20130802
  Receipt Date: 20130802
  Transmission Date: 20140515
  Serious: Yes (Other)
  Sender: FDA-Public Use
  Company Number: PHEH2013US016112

PATIENT
  Sex: Female

DRUGS (1)
  1. AFINITOR [Suspect]
     Indication: BREAST CANCER

REACTIONS (8)
  - Ear pain [Unknown]
  - Tumour marker increased [Unknown]
  - Urticaria [Unknown]
  - Stomatitis [Unknown]
  - Lip swelling [Unknown]
  - Eye swelling [Unknown]
  - Fatigue [Unknown]
  - Rash generalised [Unknown]
